FAERS Safety Report 8170739 (Version 4)
Quarter: 2012Q4

REPORT INFORMATION
  Report Type: 
  Country: FR (occurrence: FR)
  Receive Date: 20110926
  Receipt Date: 20121218
  Transmission Date: 20130627
  Serious: Yes (Life-Threatening, Other)
  Sender: FDA-Public Use
  Company Number: FR-MERCK-1109FRA00079

PATIENT
  Age: 68 None
  Sex: Male
  Weight: 75 kg

DRUGS (3)
  1. JANUVIA [Suspect]
     Indication: TYPE 2 DIABETES MELLITUS
     Dosage: 100 mg, qd
     Route: 048
     Dates: start: 200903
  2. COMPETACT [Suspect]
     Indication: TYPE 2 DIABETES MELLITUS
     Dosage: 1 DF, bid
     Route: 048
     Dates: start: 200909, end: 201104
  3. DIAMICRON [Suspect]
     Indication: TYPE 2 DIABETES MELLITUS
     Dosage: 60 mg to 90mg
     Route: 048
     Dates: start: 2000

REACTIONS (3)
  - Bladder neoplasm [Not Recovered/Not Resolved]
  - Haematuria [Unknown]
  - Oedema peripheral [Unknown]
